FAERS Safety Report 17442020 (Version 1)
Quarter: 2020Q1

REPORT INFORMATION
  Report Type: Report from Study
  Country: DE (occurrence: DE)
  Receive Date: 20200220
  Receipt Date: 20200220
  Transmission Date: 20200409
  Serious: Yes (Hospitalization, Other)
  Sender: FDA-Public Use
  Company Number: DE-MYLANLABS-2020M1018901

PATIENT
  Age: 47 Year
  Sex: Female
  Weight: 114.7 kg

DRUGS (9)
  1. PERTUZUMAB. [Suspect]
     Active Substance: PERTUZUMAB
     Dosage: UNK
     Route: 042
     Dates: start: 20180405
  2. DOCETAXEL. [Suspect]
     Active Substance: DOCETAXEL
     Dosage: UNK MILLIGRAM
     Route: 042
     Dates: start: 20180405
  3. TAMOXIFEN [Suspect]
     Active Substance: TAMOXIFEN
     Indication: PRODUCT USED FOR UNKNOWN INDICATION
     Route: 065
     Dates: end: 20171208
  4. DOCETAXEL. [Suspect]
     Active Substance: DOCETAXEL
     Indication: BREAST CANCER METASTATIC
     Dosage: 167.25 MILLIGRAM, Q3W
     Route: 042
     Dates: start: 20171222
  5. TRASTUZUMAB. [Suspect]
     Active Substance: TRASTUZUMAB
     Indication: BREAST CANCER METASTATIC
     Dosage: 611.2 MILLIGRAM,Q3W
     Route: 042
     Dates: start: 20171221
  6. PERTUZUMAB. [Suspect]
     Active Substance: PERTUZUMAB
     Indication: BREAST CANCER METASTATIC
     Dosage: 420 MILLIGRAM, Q3W
     Route: 042
  7. TRASTUZUMAB. [Suspect]
     Active Substance: TRASTUZUMAB
     Dosage: UNK
     Route: 042
     Dates: start: 20180405
  8. PERTUZUMAB. [Suspect]
     Active Substance: PERTUZUMAB
     Dosage: 840 MILLIGRAM, Q3W
     Route: 042
     Dates: start: 20171221
  9. DOCETAXEL. [Suspect]
     Active Substance: DOCETAXEL
     Dosage: 167.25 MILLIGRAM, Q3W
     Route: 042
     Dates: start: 20171221

REACTIONS (13)
  - Menstruation irregular [Unknown]
  - Nausea [Not Recovered/Not Resolved]
  - Endometrial hyperplasia [Unknown]
  - Abdominal pain upper [Recovered/Resolved]
  - Muscle spasms [Recovered/Resolved]
  - Menorrhagia [Unknown]
  - Arthralgia [Unknown]
  - Dyspepsia [Not Recovered/Not Resolved]
  - Mucosal dryness [Not Recovered/Not Resolved]
  - Pain in extremity [Not Recovered/Not Resolved]
  - Nasopharyngitis [Recovered/Resolved]
  - Diarrhoea [Recovered/Resolved]
  - Alopecia [Not Recovered/Not Resolved]

NARRATIVE: CASE EVENT DATE: 20171223
